FAERS Safety Report 5390891-2 (Version None)
Quarter: 2007Q3

REPORT INFORMATION
  Report Type: 
  Country: None (occurrence: None)
  Receive Date: 20070716
  Receipt Date: 20070628
  Transmission Date: 20080115
  Serious: Yes (Hospitalization)
  Sender: FDA-Public Use
  Company Number: DSA_30224_2007

PATIENT
  Sex: Female

DRUGS (2)
  1. VASOTEC [Suspect]
     Dosage: DF ORAL
     Route: 048
  2. INTEGRILIN [Concomitant]

REACTIONS (12)
  - ACUTE MYOCARDIAL INFARCTION [None]
  - CARDIAC MURMUR [None]
  - CAROTID BRUIT [None]
  - CORONARY ARTERY STENOSIS [None]
  - COUGH [None]
  - DIASTOLIC DYSFUNCTION [None]
  - ELECTROCARDIOGRAM ST-T CHANGE [None]
  - GALLOP RHYTHM PRESENT [None]
  - HEART RATE DECREASED [None]
  - HYPERCHOLESTEROLAEMIA [None]
  - LEFT VENTRICULAR HYPERTROPHY [None]
  - THROAT IRRITATION [None]
